FAERS Safety Report 9820799 (Version 1)
Quarter: 2013Q4

REPORT INFORMATION
  Report Type: Spontaneous
  Country: US (occurrence: None)
  Receive Date: 20131028
  Receipt Date: 20131028
  Transmission Date: 20140711
  Serious: Yes (Other)
  Sender: FDA-Public Use
  Company Number: 2013US001445

PATIENT
  Age: 52 Year
  Sex: Female
  Weight: 86 kg

DRUGS (4)
  1. ICLUSIG [Suspect]
     Indication: CHRONIC MYELOID LEUKAEMIA
     Route: 048
     Dates: start: 20130122
  2. LEXAPRO (ESCITALOPRAM OXALATE) [Concomitant]
  3. SYNTHROID (LEVOTHYROXINE SODIUM) [Concomitant]
  4. AMBIEN (ZOLPIDEM TARTRATE) [Concomitant]

REACTIONS (10)
  - Ear infection [None]
  - Sinusitis [None]
  - Pruritus [None]
  - Rash maculo-papular [None]
  - Blood pressure increased [None]
  - Dry skin [None]
  - Fatigue [None]
  - Constipation [None]
  - Blood alkaline phosphatase increased [None]
  - Alanine aminotransferase increased [None]
